FAERS Safety Report 8021952-7 (Version None)
Quarter: 2012Q1

REPORT INFORMATION
  Report Type: 
  Country: None (occurrence: None)
  Receive Date: 20120104
  Receipt Date: 20111020
  Transmission Date: 20120608
  Serious: No
  Sender: FDA-Public Use
  Company Number: US-BAYER-2011-103381

PATIENT
  Age: 10 Year
  Sex: Female
  Weight: 44.444 kg

DRUGS (1)
  1. RID 1-2-3 SYSTEM [Suspect]
     Indication: LICE INFESTATION
     Dosage: 1 DOSE; RID - DAY 1 AND DAY 9
     Route: 061
     Dates: start: 20111011, end: 20111019

REACTIONS (1)
  - SKIN INJURY [None]
